FAERS Safety Report 11728593 (Version 1)
Quarter: 2015Q4

REPORT INFORMATION
  Report Type: Spontaneous
  Country: US (occurrence: US)
  Receive Date: 20151112
  Receipt Date: 20151112
  Transmission Date: 20160304
  Serious: No
  Sender: FDA-Public Use
  Company Number: US-BAYER-2015-463626

PATIENT
  Age: 41 Year
  Sex: Male
  Weight: 86.17 kg

DRUGS (1)
  1. MIRALAX [Suspect]
     Active Substance: POLYETHYLENE GLYCOL 3350
     Indication: COLONOSCOPY
     Dosage: 1 DF, ONE DOSE EVERY 10 MINUTES
     Route: 048
     Dates: start: 20151103, end: 20151103

REACTIONS (2)
  - Intercepted drug prescribing error [None]
  - Intercepted medication error [None]

NARRATIVE: CASE EVENT DATE: 20151103
